FAERS Safety Report 7792598-0 (Version None)
Quarter: 2011Q4

REPORT INFORMATION
  Report Type: 
  Country: None (occurrence: None)
  Receive Date: 20111003
  Receipt Date: 20110928
  Transmission Date: 20120403
  Serious: Yes (Hospitalization, Disabling, Other)
  Sender: FDA-Public Use
  Company Number: US-PFIZER INC-2010069867

PATIENT
  Sex: Female
  Weight: 68.027 kg

DRUGS (17)
  1. LYRICA [Suspect]
     Indication: FIBROMYALGIA
     Dosage: 75 MG, 1X/DAY
     Route: 048
     Dates: start: 20090101, end: 20101001
  2. AMBIEN [Concomitant]
     Indication: SLEEP DISORDER
     Dosage: 10 MG, 1X/DAY
     Route: 048
  3. SOMA [Concomitant]
     Indication: MUSCLE SPASMS
     Dosage: 350 MG, 3X/DAY
     Route: 048
  4. LEXAPRO [Concomitant]
     Dosage: 20 MG, UNK
  5. VITAMIN B NOS [Concomitant]
     Dosage: UNK
  6. LYRICA [Suspect]
     Dosage: 600 MG, DAILY
  7. METHADONE [Concomitant]
     Indication: BONE PAIN
     Dosage: 40 MG, 3X/DAY
  8. LYRICA [Suspect]
     Dosage: 75 MG, 3X/DAY
  9. NEURONTIN [Concomitant]
     Indication: AFFECTIVE DISORDER
     Dosage: UNK
  10. EFFEXOR XR [Concomitant]
     Indication: AFFECTIVE DISORDER
     Dosage: 75 MG, 1X/DAY
  11. LYRICA [Suspect]
     Dosage: 200 MG, DAILY
  12. LYRICA [Suspect]
     Dosage: 300 MG, DAILY
  13. ATIVAN [Concomitant]
     Indication: NERVOUS SYSTEM DISORDER
     Dosage: 1 MG, 2X/DAY
     Route: 048
  14. OS-CAL [Concomitant]
     Indication: HYPOVITAMINOSIS
     Dosage: 1000 MG, DAILY
  15. PERCOCET [Concomitant]
     Dosage: 10/325
  16. VITAMIN D [Concomitant]
     Dosage: UNK
  17. IRON [Concomitant]

REACTIONS (16)
  - MEMORY IMPAIRMENT [None]
  - BEDRIDDEN [None]
  - BODY HEIGHT DECREASED [None]
  - ACTIVITIES OF DAILY LIVING IMPAIRED [None]
  - PNEUMONIA [None]
  - LOSS OF CONSCIOUSNESS [None]
  - SACROILIITIS [None]
  - FIBROMYALGIA [None]
  - DECREASED APPETITE [None]
  - NAUSEA [None]
  - BLOOD PRESSURE INCREASED [None]
  - WITHDRAWAL SYNDROME [None]
  - INSOMNIA [None]
  - NERVOUS SYSTEM DISORDER [None]
  - RASH MACULAR [None]
  - SKIN REACTION [None]
